FAERS Safety Report 18597981 (Version 1)
Quarter: 2020Q4

REPORT INFORMATION
  Report Type: Spontaneous
  Country: GB (occurrence: GB)
  Receive Date: 20201209
  Receipt Date: 20201209
  Transmission Date: 20210114
  Serious: Yes (Hospitalization)
  Sender: FDA-Public Use
  Company Number: GB-PURDUE-USA-2020-0182214

PATIENT
  Age: 65 Year
  Sex: Female

DRUGS (12)
  1. MONTELUKAST [Suspect]
     Active Substance: MONTELUKAST SODIUM
     Indication: ASTHMA
     Dosage: 10 MG, DAILY [AT NIGHT]
     Route: 048
  2. FOLIC ACID. [Suspect]
     Active Substance: FOLIC ACID
     Indication: PRODUCT USED FOR UNKNOWN INDICATION
     Dosage: 5 MG, DAILY
     Route: 048
  3. TIOTROPIUM [Suspect]
     Active Substance: TIOTROPIUM
     Indication: CHRONIC OBSTRUCTIVE PULMONARY DISEASE
     Dosage: 5 MCG, DAILY [EVERY MORNING]
     Route: 055
  4. SALBUTAMOL [Suspect]
     Active Substance: ALBUTEROL
     Indication: ASTHMA
     Dosage: 10 MG, DAILY [AND AS REQUIRED]
     Route: 055
  5. SALBUTAMOL [Suspect]
     Active Substance: ALBUTEROL
     Dosage: 800 MCG, DAILY
     Route: 055
  6. CYCLIZINE [Suspect]
     Active Substance: CYCLIZINE
     Indication: NAUSEA
     Dosage: 50 MG, TID
     Route: 048
  7. THEOPHYLLINE [Suspect]
     Active Substance: THEOPHYLLINE ANHYDROUS
     Indication: CHRONIC OBSTRUCTIVE PULMONARY DISEASE
     Dosage: 200 MG TWICE (400 MG, DAILY) [TO BE CONTINUED FOR 4 DAYS BEFORE THEOPHYLLINE LEVELS ARE TAKEN AGAIN]
     Route: 048
     Dates: start: 20201108
  8. THEOPHYLLINE [Suspect]
     Active Substance: THEOPHYLLINE ANHYDROUS
     Dosage: 1200 MG, DAILY (WITHDRAWN FOR 48 HOURS,RESTARTED AT 200MG TWICE DAILY)
     Route: 048
     Dates: end: 20201106
  9. FOSTAIR [Suspect]
     Active Substance: BECLOMETHASONE\FORMOTEROL
     Indication: ASTHMA
     Dosage: 4 UNIT, DAILY [PUFFS]
     Route: 055
  10. VANCOMYCIN [Suspect]
     Active Substance: VANCOMYCIN
     Indication: CLOSTRIDIUM DIFFICILE INFECTION
     Dosage: 2000 MG, DAILY
     Route: 048
     Dates: start: 20200929, end: 20201013
  11. TOLTERODINE [Suspect]
     Active Substance: TOLTERODINE
     Indication: MICTURITION URGENCY
     Dosage: 4 MG, DAILY [EVERY MORNING]
     Route: 048
  12. CARBOCISTEINE [Suspect]
     Active Substance: CARBOCYSTEINE
     Indication: CHRONIC OBSTRUCTIVE PULMONARY DISEASE
     Dosage: 1500 MG, DAILY
     Route: 048

REACTIONS (5)
  - Sinus tachycardia [Recovered/Resolved]
  - Dehydration [Unknown]
  - Vomiting [Recovering/Resolving]
  - Palpitations [Unknown]
  - Diarrhoea [Recovering/Resolving]

NARRATIVE: CASE EVENT DATE: 20200929
